FAERS Safety Report 8415095-8 (Version None)
Quarter: 2012Q2

REPORT INFORMATION
  Report Type: 
  Country: None (occurrence: None)
  Receive Date: 20120530
  Receipt Date: 20120517
  Transmission Date: 20120825
  Serious: Yes (Other)
  Sender: FDA-Public Use
  Company Number: 2012SA031620

PATIENT
  Age: 54 Year
  Sex: Female
  Weight: 95 kg

DRUGS (3)
  1. BULLFROG MARATHON MIST SPF 50 [Suspect]
     Dates: start: 20120314
  2. IBUPROFEN [Concomitant]
  3. PREMPRO [Concomitant]

REACTIONS (9)
  - PARAESTHESIA [None]
  - LIP DRY [None]
  - FATIGUE [None]
  - LACRIMATION INCREASED [None]
  - PRURITUS [None]
  - SWELLING FACE [None]
  - OEDEMA MOUTH [None]
  - BURNING SENSATION [None]
  - VISION BLURRED [None]
